FAERS Safety Report 20826970 (Version 2)
Quarter: 2022Q3

REPORT INFORMATION
  Report Type: Spontaneous
  Country: US (occurrence: None)
  Receive Date: 20220513
  Receipt Date: 20220711
  Transmission Date: 20221026
  Serious: Yes (Other)
  Sender: FDA-Public Use
  Company Number: 2022A178184

PATIENT
  Sex: Male
  Weight: 90.7 kg

DRUGS (2)
  1. SEROQUEL [Suspect]
     Active Substance: QUETIAPINE FUMARATE
     Indication: Anxiety
     Route: 048
     Dates: start: 202005
  2. SEROQUEL [Suspect]
     Active Substance: QUETIAPINE FUMARATE
     Indication: Anxiety
     Route: 048
     Dates: start: 202005

REACTIONS (1)
  - Coronary artery disease [Unknown]
